FAERS Safety Report 5375601-7 (Version None)
Quarter: 2007Q2

REPORT INFORMATION
  Report Type: 
  Country: None (occurrence: None)
  Receive Date: 20070629
  Receipt Date: 20070619
  Transmission Date: 20071010
  Serious: Yes (Other)
  Sender: FDA-Public Use
  Company Number: US-PFIZER INC-2007051705

PATIENT
  Sex: Female
  Weight: 53.6 kg

DRUGS (8)
  1. CHANTIX [Suspect]
     Indication: EX-SMOKER
  2. COMBIVENT [Concomitant]
     Route: 055
  3. FLOVENT [Concomitant]
     Route: 055
  4. DITROPAN [Concomitant]
  5. ATIVAN [Concomitant]
  6. NEURONTIN [Concomitant]
  7. CELEXA [Concomitant]
  8. PREVACID [Concomitant]

REACTIONS (2)
  - DRUG INEFFECTIVE [None]
  - SKIN CANCER [None]
